FAERS Safety Report 8131857-9 (Version None)
Quarter: 2012Q1

REPORT INFORMATION
  Report Type: 
  Country: None (occurrence: None)
  Receive Date: 20120213
  Receipt Date: 20120209
  Transmission Date: 20120608
  Serious: Yes (Other)
  Sender: FDA-Public Use
  Company Number: JP-PFIZER INC-2012036224

PATIENT
  Age: 80 Year
  Sex: Female

DRUGS (4)
  1. PLETAL [Concomitant]
     Dosage: 200 MG DAILY
  2. LIPITOR [Suspect]
     Dosage: 10 MG DAILY
     Route: 048
  3. OLMESARTAN MEDOXOMIL [Concomitant]
     Dosage: 10 MG DAILY
     Route: 048
  4. KETAS [Concomitant]
     Dosage: 40 MG DAILY

REACTIONS (2)
  - ALTERED STATE OF CONSCIOUSNESS [None]
  - COMA [None]
